FAERS Safety Report 24396699 (Version 6)
Quarter: 2025Q1

REPORT INFORMATION
  Report Type: Report from Study
  Country: US (occurrence: US)
  Receive Date: 20241004
  Receipt Date: 20250313
  Transmission Date: 20250409
  Serious: No
  Sender: DAIICHI
  Company Number: US-DAIICHI SANKYO, INC.-DS-2024-102296-USAA

PATIENT
  Sex: Male

DRUGS (2)
  1. PEXIDARTINIB [Suspect]
     Active Substance: PEXIDARTINIB
     Indication: Connective tissue neoplasm
     Dosage: 125 MG, BID
     Route: 048
     Dates: start: 20240918
  2. PEXIDARTINIB [Suspect]
     Active Substance: PEXIDARTINIB
     Indication: Soft tissue neoplasm

REACTIONS (14)
  - Impaired driving ability [Unknown]
  - Photosensitivity reaction [Unknown]
  - Weight decreased [Unknown]
  - Disorientation [Recovered/Resolved]
  - Feeling abnormal [Recovered/Resolved]
  - Loss of personal independence in daily activities [Recovered/Resolved]
  - Toxicity to various agents [Not Recovered/Not Resolved]
  - Haemoglobin increased [Unknown]
  - Pruritus [Recovered/Resolved]
  - Fatigue [Unknown]
  - Dizziness [Recovering/Resolving]
  - Rash macular [Not Recovered/Not Resolved]
  - Pruritus [Recovered/Resolved]
  - Liver disorder [Unknown]
